FAERS Safety Report 6602608-1 (Version None)
Quarter: 2010Q1

REPORT INFORMATION
  Report Type: 
  Country: None (occurrence: None)
  Receive Date: 20100225
  Receipt Date: 20100217
  Transmission Date: 20100710
  Serious: Yes (Other)
  Sender: FDA-Public Use
  Company Number: GB-AMGEN-US394406

PATIENT
  Age: 64 Year
  Sex: Female

DRUGS (4)
  1. ENBREL [Suspect]
     Indication: PSORIATIC ARTHROPATHY
     Route: 058
     Dates: start: 20090325, end: 20100129
  2. METHOTREXATE [Concomitant]
     Indication: RHEUMATOID ARTHRITIS
     Dosage: 25MG, FREQUENCY UNKNOWN
     Route: 048
     Dates: start: 20070105
  3. TRIMOVATE [Concomitant]
     Dosage: UNKNOWN
     Route: 061
     Dates: start: 20090416
  4. FOLIC ACID [Concomitant]
     Route: 048
     Dates: start: 20070105

REACTIONS (3)
  - CONDITION AGGRAVATED [None]
  - DRUG EFFECT DECREASED [None]
  - PSORIASIS [None]
